FAERS Safety Report 19441053 (Version 2)
Quarter: 2022Q3

REPORT INFORMATION
  Report Type: Report from Study
  Country: AT (occurrence: AT)
  Receive Date: 20210621
  Receipt Date: 20220821
  Transmission Date: 20221027
  Serious: Yes (Hospitalization)
  Sender: FDA-Public Use
  Company Number: AT-ABBVIE-21K-009-3942644-00

PATIENT
  Sex: Female

DRUGS (2)
  1. HUMIRA [Suspect]
     Active Substance: ADALIMUMAB
     Indication: Crohn^s disease
     Route: 058
     Dates: start: 2017, end: 202008
  2. CORTISOL [Concomitant]
     Active Substance: HYDROCORTISONE
     Indication: Product used for unknown indication

REACTIONS (7)
  - Abdominal adhesions [Unknown]
  - Procedural vomiting [Unknown]
  - Gastrointestinal tube insertion [Recovered/Resolved]
  - Herpes zoster [Unknown]
  - Coronavirus infection [Recovered/Resolved]
  - Coronavirus infection [Not Recovered/Not Resolved]
  - Back pain [Not Recovered/Not Resolved]

NARRATIVE: CASE EVENT DATE: 20200801
